FAERS Safety Report 12305365 (Version 1)
Quarter: 2016Q2

REPORT INFORMATION
  Report Type: Spontaneous
  Country: US (occurrence: US)
  Receive Date: 20160426
  Receipt Date: 20160426
  Transmission Date: 20160815
  Serious: No
  Sender: FDA-Public Use
  Company Number: US-ASTRAZENECA-2016SE28304

PATIENT
  Age: 21954 Day
  Sex: Female
  Weight: 51.3 kg

DRUGS (1)
  1. FASLODEX [Suspect]
     Active Substance: FULVESTRANT
     Indication: BREAST CANCER
     Dosage: UNKNOWN, MONTHLY
     Route: 030
     Dates: start: 201510

REACTIONS (10)
  - Insomnia [Unknown]
  - Decreased activity [Unknown]
  - Migraine [Unknown]
  - Pain [Unknown]
  - Weight increased [Unknown]
  - Injection site pain [Unknown]
  - Noninfective gingivitis [Unknown]
  - Discomfort [Unknown]
  - Nausea [Unknown]
  - Asthenia [Unknown]

NARRATIVE: CASE EVENT DATE: 20160309
